FAERS Safety Report 24065437 (Version 1)
Quarter: 2024Q3

REPORT INFORMATION
  Report Type: Spontaneous
  Country: RO (occurrence: RO)
  Receive Date: 20240709
  Receipt Date: 20240709
  Transmission Date: 20241017
  Serious: Yes (Other)
  Sender: FRESENIUS KABI
  Company Number: RO-AMGEN-ROUSP2024119840

PATIENT
  Age: 64 Year
  Sex: Male

DRUGS (5)
  1. LEUCOVORIN [Suspect]
     Active Substance: LEUCOVORIN\LEUCOVORIN CALCIUM
     Indication: Rectal neoplasm
     Dosage: UNK
     Route: 065
     Dates: start: 2024
  2. OXALIPLATIN [Suspect]
     Active Substance: OXALIPLATIN
     Indication: Rectal neoplasm
     Dosage: UNK DOSE REDUCTION
     Route: 065
     Dates: start: 2024
  3. OXALIPLATIN [Suspect]
     Active Substance: OXALIPLATIN
     Dosage: UNK
     Route: 065
     Dates: start: 2024
  4. FLUOROURACIL [Suspect]
     Active Substance: FLUOROURACIL
     Indication: Rectal neoplasm
     Dosage: UNK
     Route: 065
     Dates: start: 2024
  5. VECTIBIX [Suspect]
     Active Substance: PANITUMUMAB
     Indication: Rectal neoplasm
     Dosage: UNK
     Route: 065
     Dates: start: 2024

REACTIONS (4)
  - Diabetes mellitus [Unknown]
  - Thrombocytopenia [Unknown]
  - Skin toxicity [Unknown]
  - Keratitis [Unknown]

NARRATIVE: CASE EVENT DATE: 20240101
